FAERS Safety Report 24102423 (Version 1)
Quarter: 2024Q3

REPORT INFORMATION
  Report Type: Spontaneous
  Country: NL (occurrence: NL)
  Receive Date: 20240717
  Receipt Date: 20240717
  Transmission Date: 20241017
  Serious: Yes (Other)
  Sender: JOHNSON AND JOHNSON
  Company Number: None

PATIENT
  Age: 76 Year
  Sex: Male
  Weight: 85 kg

DRUGS (1)
  1. DARZALEX [Suspect]
     Active Substance: DARATUMUMAB
     Indication: Plasma cell myeloma
     Dosage: 1X FOUR WEEKS, 17 CC
     Route: 065
     Dates: start: 20210831

REACTIONS (2)
  - Hallucination [Not Recovered/Not Resolved]
  - Visual impairment [Not Recovered/Not Resolved]
